FAERS Safety Report 7777356-5 (Version None)
Quarter: 2011Q3

REPORT INFORMATION
  Report Type: 
  Country: None (occurrence: None)
  Receive Date: 20110926
  Receipt Date: 20110924
  Transmission Date: 20111222
  Serious: Yes (Hospitalization)
  Sender: FDA-Public Use
  Company Number: PHHO2010US05751

PATIENT
  Sex: Male
  Weight: 109.1 kg

DRUGS (5)
  1. COMPARATOR SORAFENIB [Suspect]
     Indication: HEPATIC NEOPLASM MALIGNANT
     Dosage: 400 MG, BID
     Route: 048
     Dates: start: 20100208, end: 20100408
  2. OXYCONTIN [Concomitant]
     Indication: PAIN
  3. RAD001C [Suspect]
     Indication: HEPATIC NEOPLASM MALIGNANT
     Dosage: 2.5 MG, QD
     Route: 048
     Dates: start: 20100208, end: 20100408
  4. NO TREATMENT RECEIVED [Suspect]
     Dosage: NO TREATMENT
  5. DOCUSATE SODIUM [Concomitant]
     Indication: CONSTIPATION

REACTIONS (4)
  - ABDOMINAL PAIN [None]
  - VOMITING [None]
  - INTESTINAL DILATATION [None]
  - SMALL INTESTINAL OBSTRUCTION [None]
